FAERS Safety Report 6718423-4 (Version None)
Quarter: 2010Q2

REPORT INFORMATION
  Report Type: 
  Country: None (occurrence: None)
  Receive Date: 20100510
  Receipt Date: 20100426
  Transmission Date: 20101027
  Serious: Yes (Death, Other)
  Sender: FDA-Public Use
  Company Number: KR-GENENTECH-301284

PATIENT

DRUGS (8)
  1. RITUXIMAB [Suspect]
     Indication: DIFFUSE LARGE B-CELL LYMPHOMA
     Dosage: 375 MG/M2, Q3W
     Route: 065
  2. CYCLOPHOSPHAMIDE [Suspect]
     Indication: DIFFUSE LARGE B-CELL LYMPHOMA
     Dosage: 750 MG/M2, Q3W
     Route: 065
  3. DOXORUBICIN HCL [Suspect]
     Indication: DIFFUSE LARGE B-CELL LYMPHOMA
     Dosage: 50 MG/M2, Q3W
     Route: 065
  4. VINCRISTINE [Suspect]
     Indication: DIFFUSE LARGE B-CELL LYMPHOMA
     Dosage: 1.4 MG/M2, Q3W
     Route: 065
  5. PREDNISONE TAB [Suspect]
     Indication: DIFFUSE LARGE B-CELL LYMPHOMA
     Dosage: UNK
     Route: 065
  6. PREDNISONE TAB [Suspect]
     Dosage: UNK
     Route: 065
  7. ACETAMINOPHEN [Concomitant]
     Indication: DRUG USE FOR UNKNOWN INDICATION
     Dosage: 650 MG, UNK
     Route: 048
  8. PHENIRAMINE [Concomitant]
     Indication: DRUG USE FOR UNKNOWN INDICATION
     Dosage: 45.5 MG, UNK
     Route: 042

REACTIONS (5)
  - FEBRILE NEUTROPENIA [None]
  - NEOPLASM MALIGNANT [None]
  - PNEUMOCYSTIS JIROVECI PNEUMONIA [None]
  - PNEUMONIA BACTERIAL [None]
  - TUBERCULOSIS [None]
